FAERS Safety Report 5580656-0 (Version None)
Quarter: 2008Q1

REPORT INFORMATION
  Report Type: 
  Country: None (occurrence: None)
  Receive Date: 20080103
  Receipt Date: 20071222
  Transmission Date: 20080703
  Serious: Yes (Life-Threatening, Hospitalization, Other)
  Sender: FDA-Public Use
  Company Number: US-PFIZER INC-2007064768

PATIENT
  Sex: Male
  Weight: 89.545 kg

DRUGS (8)
  1. CHANTIX [Suspect]
     Indication: SMOKING CESSATION THERAPY
     Dates: start: 20070707, end: 20070801
  2. DILAUDID [Suspect]
     Indication: PAIN
  3. OXYCONTIN [Suspect]
     Indication: PAIN
  4. PERCOCET [Suspect]
     Indication: PAIN
  5. CARBOPLATIN [Suspect]
     Indication: LUNG NEOPLASM MALIGNANT
  6. TAXOL [Suspect]
     Indication: LUNG NEOPLASM MALIGNANT
  7. DECADRON [Concomitant]
  8. COMPAZINE [Concomitant]

REACTIONS (5)
  - AGEUSIA [None]
  - CONSTIPATION [None]
  - DECREASED APPETITE [None]
  - LUNG NEOPLASM MALIGNANT [None]
  - STOMACH DISCOMFORT [None]
